FAERS Safety Report 24317087 (Version 2)
Quarter: 2024Q4

REPORT INFORMATION
  Report Type: Spontaneous
  Country: US (occurrence: US)
  Receive Date: 20240913
  Receipt Date: 20241009
  Transmission Date: 20250115
  Serious: No
  Sender: VERTEX
  Company Number: US-VERTEX PHARMACEUTICALS-2024-013651

PATIENT

DRUGS (1)
  1. KALYDECO [Suspect]
     Active Substance: IVACAFTOR
     Indication: Cystic fibrosis
     Dosage: 150MG TABLETS
     Route: 048

REACTIONS (3)
  - Fungal infection [Unknown]
  - Liver function test increased [Unknown]
  - Cystic fibrosis related diabetes [Unknown]
